FAERS Safety Report 15594629 (Version 1)
Quarter: 2018Q4

REPORT INFORMATION
  Report Type: Spontaneous
  Country: US (occurrence: US)
  Receive Date: 20181107
  Receipt Date: 20181107
  Transmission Date: 20190205
  Serious: Yes (Other)
  Sender: FDA-Public Use
  Company Number: US-009507513-1811USA001907

PATIENT
  Sex: Female

DRUGS (5)
  1. GLIPIZIDE. [Suspect]
     Active Substance: GLIPIZIDE
     Dosage: UNK
  2. JANUMET [Suspect]
     Active Substance: METFORMIN HYDROCHLORIDE\SITAGLIPTIN PHOSPHATE
     Indication: DIABETES MELLITUS
     Dosage: UNK, STRENGTH 50/500 (UNITS NOT REPORTED)
     Route: 048
  3. JANUMET [Suspect]
     Active Substance: METFORMIN HYDROCHLORIDE\SITAGLIPTIN PHOSPHATE
     Indication: DIABETES MELLITUS
     Dosage: UNK, BID; STRENGTH: 100/1000 (UNITS NOT REPORTED)
     Route: 048
  4. JANUVIA [Suspect]
     Active Substance: SITAGLIPTIN PHOSPHATE
     Indication: DIABETES MELLITUS
     Dosage: UNK
     Route: 048
     Dates: start: 2013
  5. JANUMET [Suspect]
     Active Substance: METFORMIN HYDROCHLORIDE\SITAGLIPTIN PHOSPHATE
     Dosage: 50/500 (UNITS NOT REPORTED), ONCE DAILY
     Route: 048

REACTIONS (15)
  - Procedural pain [Unknown]
  - Adverse event [Unknown]
  - Irritable bowel syndrome [Unknown]
  - Blood glucose decreased [Unknown]
  - Product dose omission [Unknown]
  - Tremor [Unknown]
  - Wrong technique in product usage process [Unknown]
  - Constipation [Unknown]
  - Rotator cuff repair [Unknown]
  - Diverticulitis [Unknown]
  - Weight increased [Unknown]
  - Gastrooesophageal reflux disease [Unknown]
  - Diarrhoea [Unknown]
  - Constipation [Recovered/Resolved]
  - Cholecystectomy [Unknown]

NARRATIVE: CASE EVENT DATE: 2018
